FAERS Safety Report 11340869 (Version 1)
Quarter: 2015Q3

REPORT INFORMATION
  Report Type: Spontaneous
  Country: US (occurrence: None)
  Receive Date: 20150803
  Receipt Date: 20150803
  Transmission Date: 20151125
  Serious: Yes (Other)
  Sender: FDA-Public Use
  Company Number: None

PATIENT
  Age: 73 Year
  Sex: Female
  Weight: 57.61 kg

DRUGS (16)
  1. OXYBUTYNIN [Concomitant]
     Active Substance: OXYBUTYNIN
  2. ASPIRIN. [Concomitant]
     Active Substance: ASPIRIN
  3. LUTEIN [Concomitant]
     Active Substance: LUTEIN
  4. DAILY MULTIVITAMIN [Concomitant]
     Active Substance: VITAMINS
  5. POTASSIUM [Concomitant]
     Active Substance: POTASSIUM
  6. FLUTICASONE PROPIONATE. [Concomitant]
     Active Substance: FLUTICASONE PROPIONATE
  7. SUCRALFATE. [Concomitant]
     Active Substance: SUCRALFATE
  8. DEXILANT [Concomitant]
     Active Substance: DEXLANSOPRAZOLE
  9. ACIDOPHILUS [Concomitant]
     Active Substance: LACTOBACILLUS ACIDOPHILUS
  10. CLARITIN [Concomitant]
     Active Substance: LORATADINE
  11. CALCIUM [Concomitant]
     Active Substance: CALCIUM
  12. PHRENILIN FORTE [Concomitant]
     Active Substance: ACETAMINOPHEN\BUTALBITAL
  13. IMODIUM [Concomitant]
     Active Substance: LOPERAMIDE HYDROCHLORIDE
  14. ASPERCREME WITH LIDOCAINE PAIN RELIEVING CREME [Suspect]
     Active Substance: LIDOCAINE HYDROCHLORIDE
     Indication: ANALGESIC THERAPY
     Dosage: ON SKIN - THIN LAYER; 6 TO 8 HOURS
     Route: 061
     Dates: start: 20150712, end: 20150714
  15. ALEVE [Concomitant]
     Active Substance: NAPROXEN SODIUM
  16. D3 [Concomitant]
     Active Substance: 25-HYDROXYCHOLECALCIFEROL, 5-TRANS-

REACTIONS (2)
  - Pruritus [None]
  - Urticaria [None]

NARRATIVE: CASE EVENT DATE: 20150714
